FAERS Safety Report 24343678 (Version 2)
Quarter: 2024Q4

REPORT INFORMATION
  Report Type: Spontaneous
  Country: US (occurrence: US)
  Receive Date: 20240920
  Receipt Date: 20241217
  Transmission Date: 20250115
  Serious: No
  Sender: SANOFI AVENTIS
  Company Number: US-SA-2024SA268120

PATIENT
  Age: 4 Year
  Sex: Male

DRUGS (2)
  1. DUPIXENT [Suspect]
     Active Substance: DUPILUMAB
     Indication: Dermatitis atopic
     Dosage: 300 MG, Q4W
     Route: 058
  2. HYDROXYZINE HYDROCHLORIDE [Concomitant]
     Active Substance: HYDROXYZINE HYDROCHLORIDE
     Indication: Pruritus
     Dosage: UNK

REACTIONS (7)
  - Aggression [Recovering/Resolving]
  - Cough [Recovering/Resolving]
  - Aphthous ulcer [Recovering/Resolving]
  - Insomnia [Recovering/Resolving]
  - Rash [Recovering/Resolving]
  - Eczema [Recovering/Resolving]
  - Skin haemorrhage [Unknown]
